FAERS Safety Report 22624920 (Version 1)
Quarter: 2023Q2

REPORT INFORMATION
  Report Type: Spontaneous
  Country: US (occurrence: None)
  Receive Date: 20230620
  Receipt Date: 20230620
  Transmission Date: 20230721
  Serious: Yes (Hospitalization, Disabling)
  Sender: FDA-Public Use
  Company Number: None

PATIENT
  Age: 57 Year
  Sex: Male
  Weight: 71.1 kg

DRUGS (7)
  1. TADALAFIL [Suspect]
     Active Substance: TADALAFIL
     Indication: Prophylaxis
     Dosage: OTHER QUANTITY : 1 TROCHE;?FREQUENCY : DAILY;?
     Route: 060
     Dates: start: 20220207, end: 20220401
  2. Vitamin D3/K2 [Concomitant]
  3. Vitamin A [Concomitant]
  4. VITAMIN B COMPLEX [Concomitant]
     Active Substance: CYANOCOBALAMIN\DEXPANTHENOL\NIACINAMIDE\PYRIDOXINE HYDROCHLORIDE\RIBOFLAVIN 5^-PHOSPHATE SODIUM\THIA
  5. VITAMIN C [Concomitant]
     Active Substance: ASCORBIC ACID
  6. ASTAXANTHIN [Concomitant]
  7. TADALAFIL [Suspect]
     Active Substance: TADALAFIL
     Indication: Erectile dysfunction

REACTIONS (4)
  - Motor dysfunction [None]
  - Cardiovascular disorder [None]
  - Infarction [None]
  - Cerebrovascular accident [None]

NARRATIVE: CASE EVENT DATE: 20220401
